FAERS Safety Report 6400263-7 (Version None)
Quarter: 2009Q4

REPORT INFORMATION
  Report Type: 
  Country: None (occurrence: None)
  Receive Date: 20091014
  Receipt Date: 20091007
  Transmission Date: 20100525
  Serious: Yes (Other)
  Sender: FDA-Public Use
  Company Number: US-MERCK-0910USA00740

PATIENT
  Sex: Female

DRUGS (1)
  1. FOSAMAX [Suspect]
     Route: 048
     Dates: end: 20090325

REACTIONS (4)
  - BLOOD PRESSURE DECREASED [None]
  - EROSIVE OESOPHAGITIS [None]
  - OESOPHAGEAL HAEMORRHAGE [None]
  - OESOPHAGEAL OEDEMA [None]
